FAERS Safety Report 24055233 (Version 3)
Quarter: 2024Q3

REPORT INFORMATION
  Report Type: Spontaneous
  Country: FR (occurrence: FR)
  Receive Date: 20240705
  Receipt Date: 20240719
  Transmission Date: 20241017
  Serious: Yes (Other)
  Sender: OTSUKA
  Company Number: FR-OTSUKA-2024_018266

PATIENT
  Age: 27 Year
  Sex: Male

DRUGS (6)
  1. ABILIFY [Suspect]
     Active Substance: ARIPIPRAZOLE
     Indication: Product used for unknown indication
     Dosage: UNK
     Route: 065
     Dates: start: 2006
  2. BUPRENORPHINE HYDROCHLORIDE [Suspect]
     Active Substance: BUPRENORPHINE HYDROCHLORIDE
     Indication: Product used for unknown indication
     Dosage: UNK
     Route: 065
  3. QUETIAPINE FUMARATE [Suspect]
     Active Substance: QUETIAPINE FUMARATE
     Indication: Product used for unknown indication
     Dosage: UNK
     Route: 065
  4. COCAINE [Concomitant]
     Active Substance: COCAINE
     Indication: Product used for unknown indication
     Dosage: UNK
     Route: 065
     Dates: start: 2010, end: 2017
  5. HEROIN [Concomitant]
     Active Substance: DIAMORPHINE
     Indication: Product used for unknown indication
     Dosage: UNK
     Route: 065
     Dates: start: 2010, end: 2017
  6. METHADONE [Concomitant]
     Active Substance: METHADONE HYDROCHLORIDE
     Indication: Product used for unknown indication
     Dosage: UNK
     Route: 065

REACTIONS (18)
  - Drug dependence [Unknown]
  - Suicidal ideation [Unknown]
  - Voyeurism [Unknown]
  - Emotional disorder [Unknown]
  - Sexually inappropriate behaviour [Unknown]
  - Sexual life impairment [Unknown]
  - Sexually transmitted disease [Unknown]
  - Malaise [Unknown]
  - Mania [Unknown]
  - Depression [Unknown]
  - Libido increased [Unknown]
  - Gambling disorder [Recovered/Resolved]
  - Partner stress [Unknown]
  - Homeless [Unknown]
  - Theft [Unknown]
  - Social problem [Unknown]
  - Economic problem [Unknown]
  - Unemployment [Unknown]

NARRATIVE: CASE EVENT DATE: 20060101
